FAERS Safety Report 23328729 (Version 2)
Quarter: 2023Q4

REPORT INFORMATION
  Report Type: Report from Study
  Country: KR (occurrence: KR)
  Receive Date: 20231221
  Receipt Date: 20231226
  Transmission Date: 20240109
  Serious: Yes (Life-Threatening, Hospitalization, Other)
  Sender: FDA-Public Use
  Company Number: KR-JNJFOC-20231238434

PATIENT
  Age: 75 Year
  Sex: Male
  Weight: 55.6 kg

DRUGS (53)
  1. ERLEADA [Suspect]
     Active Substance: APALUTAMIDE
     Indication: Hormone-dependent prostate cancer
     Route: 048
     Dates: start: 20230817, end: 20231108
  2. ALLEGRA [Concomitant]
     Active Substance: FEXOFENADINE HYDROCHLORIDE
     Indication: Rash
     Route: 048
     Dates: start: 20230817
  3. XGEVA [Concomitant]
     Active Substance: DENOSUMAB
     Indication: Hormone-dependent prostate cancer
     Route: 058
     Dates: start: 20230817
  4. CALCIUM CARBONATE [Concomitant]
     Active Substance: CALCIUM CARBONATE
     Indication: Hormone-dependent prostate cancer
     Route: 048
     Dates: start: 20230914
  5. ASIDOL [Concomitant]
     Indication: Hormone-dependent prostate cancer
     Route: 048
     Dates: start: 20230914, end: 20231203
  6. TAZOPERAN [Concomitant]
     Indication: Proctitis
     Route: 042
     Dates: start: 20231130, end: 20231130
  7. TAZOPERAN [Concomitant]
     Route: 042
     Dates: start: 20231201, end: 20231201
  8. PROFA [Concomitant]
     Indication: Drug reaction with eosinophilia and systemic symptoms
     Dosage: DOSE:1/100G/ML
     Route: 042
     Dates: start: 20231130, end: 20231130
  9. PLASMA SOLUTION A [Concomitant]
     Indication: Dehydration
     Route: 042
     Dates: start: 20231130, end: 20231130
  10. HUMULIN R [Concomitant]
     Active Substance: INSULIN HUMAN
     Indication: Hyperglycaemia
     Dosage: DOSE : 50 UNITS
     Route: 042
     Dates: start: 20231212
  11. ALBUMIN HUMAN [Concomitant]
     Active Substance: ALBUMIN HUMAN
     Indication: Hypoalbuminaemia
     Dosage: 20%
     Route: 042
     Dates: start: 20231130, end: 20231205
  12. ALBUMIN HUMAN [Concomitant]
     Active Substance: ALBUMIN HUMAN
     Dosage: 5%
     Route: 042
     Dates: start: 20231205, end: 20231206
  13. ALBUMIN HUMAN [Concomitant]
     Active Substance: ALBUMIN HUMAN
     Route: 042
     Dates: start: 20231207, end: 20231212
  14. LIDOCAINE [Concomitant]
     Active Substance: LIDOCAINE
     Indication: Biopsy skin
     Route: 065
     Dates: start: 20231130, end: 20231130
  15. BEAROBAN [Concomitant]
     Indication: Infection prophylaxis
     Route: 062
     Dates: start: 20231130, end: 20231130
  16. DEXAMETHASONE [Concomitant]
     Active Substance: DEXAMETHASONE
     Indication: Drug reaction with eosinophilia and systemic symptoms
     Route: 030
     Dates: start: 20231130, end: 20231201
  17. PENIRAMIN [Concomitant]
     Indication: Drug reaction with eosinophilia and systemic symptoms
     Route: 030
     Dates: start: 20231130, end: 20231201
  18. PENIRAMIN [Concomitant]
     Route: 030
     Dates: start: 20231202, end: 20231202
  19. BEPOTASTINE [Concomitant]
     Active Substance: BEPOTASTINE
     Indication: Drug reaction with eosinophilia and systemic symptoms
     Route: 048
     Dates: start: 20231201, end: 20231207
  20. LERIZINE [Concomitant]
     Indication: Drug reaction with eosinophilia and systemic symptoms
     Route: 048
     Dates: start: 20231201, end: 20231204
  21. URSODIOL [Concomitant]
     Active Substance: URSODIOL
     Indication: Drug reaction with eosinophilia and systemic symptoms
     Route: 048
     Dates: start: 20231201, end: 20231201
  22. URSODIOL [Concomitant]
     Active Substance: URSODIOL
     Route: 048
     Dates: start: 20231202, end: 20231202
  23. URSODIOL [Concomitant]
     Active Substance: URSODIOL
     Route: 048
     Dates: start: 20231202
  24. GODEX [ADENINE HYDROCHLORIDE;CARNITINE OROTATE;CYANOCOBALAMIN;LIVER;PY [Concomitant]
     Indication: Drug reaction with eosinophilia and systemic symptoms
     Dosage: 3 CAP
     Route: 048
     Dates: start: 20231201
  25. ORNITHINE ASPARTATE [Concomitant]
     Active Substance: ORNITHINE ASPARTATE
     Indication: Drug reaction with eosinophilia and systemic symptoms
     Route: 042
     Dates: start: 20231202, end: 20231206
  26. ORNITHINE ASPARTATE [Concomitant]
     Active Substance: ORNITHINE ASPARTATE
     Route: 042
     Dates: start: 20231207, end: 20231211
  27. METHYLPREDNISOLONE SODIUM SUCCINATE [Concomitant]
     Active Substance: METHYLPREDNISOLONE SODIUM SUCCINATE
     Indication: Drug reaction with eosinophilia and systemic symptoms
     Route: 042
     Dates: start: 20231201, end: 20231204
  28. METHYLPREDNISOLONE SODIUM SUCCINATE [Concomitant]
     Active Substance: METHYLPREDNISOLONE SODIUM SUCCINATE
     Route: 042
     Dates: start: 20231205, end: 20231206
  29. METHYLPREDNISOLONE SODIUM SUCCINATE [Concomitant]
     Active Substance: METHYLPREDNISOLONE SODIUM SUCCINATE
     Route: 042
     Dates: start: 20231206, end: 20231207
  30. METHYLPREDNISOLONE SODIUM SUCCINATE [Concomitant]
     Active Substance: METHYLPREDNISOLONE SODIUM SUCCINATE
     Route: 042
     Dates: start: 20231212, end: 20231214
  31. LEVOFLOXACIN [Concomitant]
     Active Substance: LEVOFLOXACIN
     Indication: Proctitis
     Route: 042
     Dates: start: 20231201, end: 20231204
  32. CEFTRIAXONE SODIUM [Concomitant]
     Active Substance: CEFTRIAXONE SODIUM
     Indication: Proctitis
     Route: 042
     Dates: start: 20231205, end: 20231206
  33. METHYSOLONE [Concomitant]
     Indication: Drug reaction with eosinophilia and systemic symptoms
     Route: 042
     Dates: start: 20231207, end: 20231211
  34. MIDAZOLAM [Concomitant]
     Active Substance: MIDAZOLAM
     Indication: Sedation
     Route: 042
     Dates: start: 20231208
  35. PROPOFOL [Concomitant]
     Active Substance: PROPOFOL
     Indication: Sedation
     Route: 042
     Dates: start: 20231206
  36. ULTIAN [Concomitant]
     Indication: Sedation
     Route: 042
     Dates: start: 20231206
  37. NOREPINEPHRINE BITARTRATE [Concomitant]
     Active Substance: NOREPINEPHRINE BITARTRATE
     Indication: Hypotension
     Route: 042
     Dates: start: 20231206
  38. ETOMIDATE [Concomitant]
     Active Substance: ETOMIDATE
     Indication: Endotracheal intubation
     Route: 042
     Dates: start: 20231206, end: 20231206
  39. ROCUMERON [Concomitant]
     Indication: Endotracheal intubation
     Route: 042
     Dates: start: 20231206, end: 20231206
  40. ENOXAPARIN SODIUM [Concomitant]
     Active Substance: ENOXAPARIN SODIUM
     Indication: Thrombosis prophylaxis
     Route: 058
     Dates: start: 20231206
  41. COMBIFLEX [ALANINE;ARGININE;CALCIUM HYDROXIDE;GLUCOSE MONOHYDRATE;GLYC [Concomitant]
     Indication: Blood glucose decreased
     Route: 042
     Dates: start: 20231206
  42. FURTMAN [Concomitant]
     Indication: Mineral supplementation
     Route: 042
     Dates: start: 20231206
  43. VITAMINS [Concomitant]
     Active Substance: VITAMINS
     Indication: Vitamin supplementation
     Route: 042
     Dates: start: 20231206
  44. FREAMINE [ALANINE;ARGININE;CYSTEINE HYDROCHLORIDE;GLYCINE;HISTIDINE;IS [Concomitant]
     Indication: Nutritional supplementation
     Route: 042
     Dates: start: 20231206
  45. AMINO ACIDS\DEXTROSE\ELECTROLYTES NOS\SOYBEAN OIL [Concomitant]
     Active Substance: AMINO ACIDS\DEXTROSE\ELECTROLYTES NOS\SOYBEAN OIL
     Indication: Nutritional supplementation
     Route: 042
     Dates: start: 20231207, end: 20231210
  46. DULACKHAN [Concomitant]
     Indication: Prophylaxis
     Route: 048
     Dates: start: 20231202
  47. CALCIUM POLYCARBOPHIL [Concomitant]
     Active Substance: CALCIUM POLYCARBOPHIL
     Indication: Prophylaxis
     Route: 048
     Dates: start: 20231204
  48. AGIO [Concomitant]
     Indication: Constipation
     Route: 048
     Dates: start: 20231204, end: 20231205
  49. ALFACALCIDOL [Concomitant]
     Active Substance: ALFACALCIDOL
     Indication: Hormone-dependent prostate cancer
     Dosage: DOSE: 1MCG
     Route: 048
     Dates: start: 20231204
  50. CALCIUM POLYSTYRENE SULFONATE [Concomitant]
     Active Substance: CALCIUM POLYSTYRENE SULFONATE
     Indication: Hyperglycaemia
     Route: 048
     Dates: start: 20231212
  51. CALCIUM POLYSTYRENE SULFONATE [Concomitant]
     Active Substance: CALCIUM POLYSTYRENE SULFONATE
     Route: 048
     Dates: start: 20231209
  52. KASKA [Concomitant]
     Indication: Hyperglycaemia
     Route: 048
     Dates: start: 20231213
  53. PHOSTEN [Concomitant]
     Indication: Hyperglycaemia
     Route: 042
     Dates: start: 20231207, end: 20231208

REACTIONS (2)
  - Pneumocystis jirovecii pneumonia [Not Recovered/Not Resolved]
  - Shock haemorrhagic [Unknown]

NARRATIVE: CASE EVENT DATE: 20231205
